FAERS Safety Report 16163272 (Version 1)
Quarter: 2019Q2

REPORT INFORMATION
  Report Type: Spontaneous
  Country: GB (occurrence: GB)
  Receive Date: 20190405
  Receipt Date: 20190405
  Transmission Date: 20190711
  Serious: Yes (Other)
  Sender: FDA-Public Use
  Company Number: GB-APOTEX-2019AP010964

PATIENT
  Age: 71 Year
  Sex: Female

DRUGS (5)
  1. CALCICHEW [Concomitant]
     Active Substance: CALCIUM CARBONATE
     Indication: PRODUCT USED FOR UNKNOWN INDICATION
     Dosage: 2500 MG, QD
     Route: 065
  2. CALCITRIOL. [Concomitant]
     Active Substance: CALCITRIOL
     Indication: VITAMIN D DEFICIENCY
     Dosage: 500 NG, DAILY
     Route: 065
  3. IBANDRONATE [Suspect]
     Active Substance: IBANDRONATE SODIUM
     Indication: OSTEOPOROSIS
     Dosage: 150 MG, Q.M.T.
     Route: 048
     Dates: start: 2002, end: 201408
  4. DICLOFENAC [Concomitant]
     Active Substance: DICLOFENAC
     Indication: VITAMIN D DEFICIENCY
     Dosage: 100 MG, DAILY
     Route: 065
  5. VITAMIN B12 [Concomitant]
     Active Substance: CYANOCOBALAMIN
     Indication: PRODUCT USED FOR UNKNOWN INDICATION
     Dosage: UNK
     Route: 065

REACTIONS (2)
  - Pathological fracture [Recovering/Resolving]
  - Atypical femur fracture [Recovering/Resolving]
